FAERS Safety Report 5918911-4 (Version None)
Quarter: 2008Q4

REPORT INFORMATION
  Report Type: 
  Country: None (occurrence: None)
  Receive Date: 20081015
  Receipt Date: 20081007
  Transmission Date: 20090506
  Serious: Yes (Death, Other)
  Sender: FDA-Public Use
  Company Number: US-ABBOTT-07P-163-0377570-00

PATIENT
  Sex: Male

DRUGS (7)
  1. HUMIRA [Suspect]
     Indication: IRRITABLE BOWEL SYNDROME
  2. HUMIRA [Suspect]
     Indication: COLITIS
     Dates: start: 20061101
  3. HUMIRA [Suspect]
     Indication: COLITIS ULCERATIVE
  4. INFLIXIMAB [Suspect]
     Indication: COLITIS ULCERATIVE
     Route: 042
     Dates: start: 20020701, end: 20060307
  5. MERCAPTOPURINE [Suspect]
     Indication: COLITIS ULCERATIVE
     Dates: start: 19991001, end: 20070401
  6. MESALAMINE [Concomitant]
     Indication: IRRITABLE BOWEL SYNDROME
  7. MESALAMINE [Concomitant]
     Indication: COLITIS

REACTIONS (3)
  - ANAEMIA [None]
  - HEPATOSPLENIC T-CELL LYMPHOMA [None]
  - IRRITABLE BOWEL SYNDROME [None]
